FAERS Safety Report 17974668 (Version 1)
Quarter: 2020Q3

REPORT INFORMATION
  Report Type: Spontaneous
  Country: US (occurrence: US)
  Receive Date: 20200702
  Receipt Date: 20200702
  Transmission Date: 20201103
  Serious: No
  Sender: FDA-Public Use
  Company Number: None

PATIENT
  Age: 38 Year
  Sex: Female
  Weight: 56.25 kg

DRUGS (4)
  1. LEMON. [Concomitant]
     Active Substance: LEMON
  2. TERBINAFINE HCL 250 MG [Suspect]
     Active Substance: TERBINAFINE HYDROCHLORIDE
     Indication: FUNGAL INFECTION
     Dosage: ?          QUANTITY:1 TABLET(S);OTHER ROUTE:SWALLOW BY MOUTH?
  3. NATURAL JUICES [Concomitant]
  4. CILANTRO [Concomitant]

REACTIONS (4)
  - Self-medication [None]
  - Skin discolouration [None]
  - Liver disorder [None]
  - Pruritus [None]
